FAERS Safety Report 7389457-4 (Version None)
Quarter: 2011Q2

REPORT INFORMATION
  Report Type: 
  Country: None (occurrence: None)
  Receive Date: 20110401
  Receipt Date: 20110324
  Transmission Date: 20111010
  Serious: Yes (Hospitalization)
  Sender: FDA-Public Use
  Company Number: US-JNJFOC-20110304948

PATIENT
  Age: 60 Year
  Sex: Male

DRUGS (7)
  1. EXTRA STRENGTH TYLENOL [Suspect]
     Indication: BACK PAIN
     Route: 048
  2. DILANTIN [Concomitant]
     Indication: ARTERIOVENOUS MALFORMATION
  3. EXTRA STRENGTH TYLENOL [Suspect]
     Indication: MUSCULOSKELETAL PAIN
     Route: 048
  4. MIRTAZAPINE [Concomitant]
     Indication: POST-TRAUMATIC STRESS DISORDER
  5. ALPRAZOLAM [Concomitant]
     Indication: POST-TRAUMATIC STRESS DISORDER
  6. CALCIUM [Concomitant]
     Indication: MEDICAL DIET
  7. FUROSEMIDE [Concomitant]
     Indication: PERICARDIAL EFFUSION

REACTIONS (3)
  - PRODUCT QUALITY ISSUE [None]
  - ABDOMINAL DISTENSION [None]
  - CARDIAC DISORDER [None]
